FAERS Safety Report 8573767-9 (Version None)
Quarter: 2012Q3

REPORT INFORMATION
  Report Type: 
  Country: None (occurrence: None)
  Receive Date: 20120806
  Receipt Date: 20120726
  Transmission Date: 20120928
  Serious: Yes (Other)
  Sender: FDA-Public Use
  Company Number: JP-GLAXOSMITHKLINE-B0816058A

PATIENT
  Age: 83 Year
  Sex: Female
  Weight: 43 kg

DRUGS (3)
  1. RESTAS [Concomitant]
     Indication: INSOMNIA
     Dosage: 1MG PER DAY
     Route: 048
  2. PAXIL [Suspect]
     Indication: DEPRESSION
     Dosage: 10MG PER DAY
     Route: 048
  3. PAXIL [Suspect]
     Dosage: 40MG PER DAY
     Route: 048

REACTIONS (8)
  - MANIA [None]
  - SENSORY DISTURBANCE [None]
  - HYPERKINESIA [None]
  - MUSCULAR WEAKNESS [None]
  - ANGER [None]
  - BIPOLAR DISORDER [None]
  - LOGORRHOEA [None]
  - PERSECUTORY DELUSION [None]
